FAERS Safety Report 20105257 (Version 3)
Quarter: 2022Q1

REPORT INFORMATION
  Report Type: Spontaneous
  Country: CZ (occurrence: CZ)
  Receive Date: 20211124
  Receipt Date: 20220216
  Transmission Date: 20220424
  Serious: Yes (Hospitalization, Other)
  Sender: FDA-Public Use
  Company Number: CZ-ASTELLAS-2021US041887

PATIENT
  Age: 41 Year
  Sex: Male

DRUGS (13)
  1. TAMSULOSIN [Suspect]
     Active Substance: TAMSULOSIN
     Indication: Renal stone removal
     Dosage: 0.4 MG, ONCE DAILY, (0-0-1)
     Route: 065
  2. DICLOFENAC [Concomitant]
     Active Substance: DICLOFENAC
     Indication: Pain
     Dosage: 50 MG, THRICE DAILY (1-1-1) ; TIME INTERVAL:
     Route: 065
  3. DICLOFENAC [Concomitant]
     Active Substance: DICLOFENAC
     Dosage: 50 MG, THRICE DAILY (1-1-1) ; TIME INTERVAL:
     Route: 065
  4. DICLOFENAC [Concomitant]
     Active Substance: DICLOFENAC
     Dosage: 50 MG, THRICE DAILY (1-1-1) ; TIME INTERVAL:
     Route: 065
  5. AMISULPRIDE [Concomitant]
     Active Substance: AMISULPRIDE
     Dosage: 200 MG, ONCE DAILY (0-0-1)
     Route: 065
  6. AMISULPRIDE [Concomitant]
     Active Substance: AMISULPRIDE
     Indication: Product used for unknown indication
     Dosage: 200 MG, ONCE DAILY (0-0-1)
     Route: 065
  7. AMISULPRIDE [Concomitant]
     Active Substance: AMISULPRIDE
     Indication: Product used for unknown indication
     Dosage: 200 MG, ONCE DAILY (0-0-1)
     Route: 065
  8. FELODIPINE [Concomitant]
     Active Substance: FELODIPINE
     Dosage: 5 MG, ONCE DAILY (1-0-0)
     Route: 065
  9. FELODIPINE [Concomitant]
     Active Substance: FELODIPINE
     Indication: Product used for unknown indication
     Dosage: 5 MG, ONCE DAILY (1-0-0)
     Route: 065
  10. FELODIPINE [Concomitant]
     Active Substance: FELODIPINE
     Indication: Product used for unknown indication
     Dosage: 5 MG, ONCE DAILY (1-0-0)
     Route: 065
  11. METAMIZOLE;PITOFENONE [Concomitant]
     Indication: Pain
     Dosage: 30-30-30 GTT, THRICE DAILY () ; TIME INTERVAL:
     Route: 065
  12. METAMIZOLE;PITOFENONE [Concomitant]
     Dosage: 30-30-30 GTT, THRICE DAILY () ; TIME INTERVAL:
     Route: 065
  13. METAMIZOLE;PITOFENONE [Concomitant]
     Dosage: 30-30-30 GTT, THRICE DAILY () ; TIME INTERVAL:
     Route: 065

REACTIONS (3)
  - Priapism [Unknown]
  - Product use in unapproved indication [Unknown]
  - Off label use [Unknown]
